FAERS Safety Report 8175431-7 (Version None)
Quarter: 2012Q1

REPORT INFORMATION
  Report Type: 
  Country: None (occurrence: None)
  Receive Date: 20120229
  Receipt Date: 20120220
  Transmission Date: 20120608
  Serious: Yes (Hospitalization, Other)
  Sender: FDA-Public Use
  Company Number: US-ASTRAZENECA-2010SE16052

PATIENT
  Age: 64 Year
  Sex: Male

DRUGS (1)
  1. SYMBICORT [Suspect]
     Dosage: 160/4.5 MCG, DAILY
     Route: 055

REACTIONS (5)
  - HERNIA [None]
  - SPONDYLOLISTHESIS [None]
  - DRUG DOSE OMISSION [None]
  - VERTEBRAL FORAMINAL STENOSIS [None]
  - DYSPNOEA [None]
